FAERS Safety Report 12248198 (Version 1)
Quarter: 2016Q2

REPORT INFORMATION
  Report Type: Spontaneous
  Country: US (occurrence: None)
  Receive Date: 20160407
  Receipt Date: 20160407
  Transmission Date: 20160815
  Serious: No
  Sender: FDA-Public Use
  Company Number: None

PATIENT
  Age: 79 Year
  Sex: Female

DRUGS (11)
  1. XALKORI [Suspect]
     Active Substance: CRIZOTINIB
     Indication: BRONCHIAL CARCINOMA
     Dosage: 250 MG 500 MG PO
     Route: 048
     Dates: start: 20160404
  2. CLINDAMYCIN [Concomitant]
     Active Substance: CLINDAMYCIN\CLINDAMYCIN PHOSPHATE
  3. HYDROXYZ [Concomitant]
     Active Substance: HYDROXYZINE HYDROCHLORIDE
  4. TRIAMCINOLON [Concomitant]
  5. DESONIDE. [Concomitant]
     Active Substance: DESONIDE
  6. METHYPRED [Concomitant]
  7. METRONIDAZOL [Concomitant]
     Active Substance: METRONIDAZOLE
  8. XALKORI [Suspect]
     Active Substance: CRIZOTINIB
     Indication: LUNG NEOPLASM MALIGNANT
     Dosage: 250 MG 500 MG PO
     Route: 048
     Dates: start: 20160404
  9. A-HYDROCORT [Concomitant]
     Active Substance: HYDROCORTISONE SODIUM SUCCINATE
  10. RESTASIS [Concomitant]
     Active Substance: CYCLOSPORINE
  11. DOXYCYCL [Concomitant]

REACTIONS (1)
  - Dyspnoea [None]

NARRATIVE: CASE EVENT DATE: 20160405
